FAERS Safety Report 8067074-0 (Version None)
Quarter: 2012Q1

REPORT INFORMATION
  Report Type: 
  Country: None (occurrence: None)
  Receive Date: 20120124
  Receipt Date: 20120119
  Transmission Date: 20120608
  Serious: Yes (Death, Other)
  Sender: FDA-Public Use
  Company Number: NO-PFIZER INC-2011313873

PATIENT
  Age: 62 Year
  Sex: Male
  Weight: 78 kg

DRUGS (8)
  1. AFINITOR [Suspect]
     Indication: RENAL CANCER
  2. CERTICAN [Suspect]
     Indication: RENAL CANCER
     Dosage: 3 MG, 1X/DAY
     Route: 048
     Dates: start: 20100421, end: 20110803
  3. PREDNISOLONE [Concomitant]
     Dosage: 5 MG, QD
     Dates: start: 19911204
  4. SANDIMMUNE [Concomitant]
     Indication: RENAL TRANSPLANT
     Dosage: 125 MG
     Dates: start: 19911204, end: 20100421
  5. LESCOL [Concomitant]
     Indication: HYPERLIPIDAEMIA
     Dosage: 80 MG, UNK
     Dates: start: 20090101
  6. SUTENT [Suspect]
     Indication: RENAL CANCER
  7. IMURAN [Concomitant]
  8. LERCANIDIPINE [Concomitant]
     Indication: HYPERTENSION
     Dosage: 10 MG, QD, SEVERAL YEARS

REACTIONS (5)
  - PNEUMONITIS [None]
  - TERMINAL STATE [None]
  - DISEASE PROGRESSION [None]
  - DRUG RESISTANCE [None]
  - RENAL CANCER METASTATIC [None]
